FAERS Safety Report 7459605-6 (Version None)
Quarter: 2011Q2

REPORT INFORMATION
  Report Type: 
  Country: None (occurrence: None)
  Receive Date: 20110505
  Receipt Date: 20110427
  Transmission Date: 20111010
  Serious: Yes (Hospitalization)
  Sender: FDA-Public Use
  Company Number: PHHY2010US43450

PATIENT
  Sex: Male

DRUGS (3)
  1. COUMADIN [Concomitant]
  2. GLEEVEC [Suspect]
     Indication: CHRONIC MYELOID LEUKAEMIA
     Dosage: 500 MG, QD
     Route: 048
     Dates: start: 20070918
  3. WARFARIN [Concomitant]

REACTIONS (6)
  - INTERNATIONAL NORMALISED RATIO DECREASED [None]
  - RASH ERYTHEMATOUS [None]
  - PSORIASIS [None]
  - SKIN DISORDER [None]
  - ATRIAL FLUTTER [None]
  - TINEA INFECTION [None]
